FAERS Safety Report 16108297 (Version 1)
Quarter: 2019Q1

REPORT INFORMATION
  Report Type: Report from Study
  Country: US (occurrence: US)
  Receive Date: 20190322
  Receipt Date: 20190322
  Transmission Date: 20190418
  Serious: Yes (Hospitalization)
  Sender: FDA-Public Use
  Company Number: PHEH2019US009487

PATIENT
  Sex: Male

DRUGS (1)
  1. ENTRESTO [Suspect]
     Active Substance: SACUBITRIL\VALSARTAN
     Indication: CARDIAC FAILURE
     Route: 048

REACTIONS (6)
  - Heart rate increased [Unknown]
  - Blood pressure fluctuation [Unknown]
  - Left ventricular enlargement [Unknown]
  - Blood potassium abnormal [Unknown]
  - Renal disorder [Unknown]
  - Device malfunction [Unknown]
